FAERS Safety Report 7918891-6 (Version None)
Quarter: 2011Q4

REPORT INFORMATION
  Report Type: 
  Country: None (occurrence: None)
  Receive Date: 20111116
  Receipt Date: 20111110
  Transmission Date: 20120403
  Serious: Yes (Other)
  Sender: FDA-Public Use
  Company Number: PHEH2011US08026

PATIENT
  Age: 58 Year
  Sex: Female

DRUGS (5)
  1. HYDROCHLOROTHIAZIDE [Concomitant]
     Dosage: UNK UKN, OT
  2. VYTORIN [Concomitant]
     Dosage: UNK UKN, OT
  3. MULTI-VITAMINS [Concomitant]
     Dosage: UNK UKN, OT
  4. GILENYA [Suspect]
     Dosage: 0.5 MG, QD
     Route: 048
  5. SYNTHROID [Concomitant]
     Dosage: UNK UKN, OT

REACTIONS (5)
  - BACK PAIN [None]
  - SKIN EXFOLIATION [None]
  - RASH PRURITIC [None]
  - DERMATITIS ALLERGIC [None]
  - PAIN [None]
